FAERS Safety Report 25549719 (Version 2)
Quarter: 2025Q4

REPORT INFORMATION
  Report Type: Spontaneous
  Country: JP (occurrence: JP)
  Receive Date: 20250714
  Receipt Date: 20251017
  Transmission Date: 20260117
  Serious: Yes (Death, Other)
  Sender: BRISTOL-MYERS SQUIBB COMPANY
  Company Number: JP-TAIHO-2025-007151

PATIENT
  Age: 37 Year
  Sex: Male
  Weight: 39.0 kg

DRUGS (6)
  1. ABRAXANE [Suspect]
     Active Substance: PACLITAXEL
     Indication: Oesophageal adenocarcinoma
     Dosage: ON DAYS 1, 8, AND 15 OF EACH 28-DAY CYCLE; CYCLE 1 DAILY DOSE: 110 MILLIGRAM(S)
     Dates: start: 20250627, end: 20250627
  2. CYRAMZA [Suspect]
     Active Substance: RAMUCIRUMAB
     Indication: Oesophageal adenocarcinoma
     Dosage: ON DAYS 1, 8, AND 15 OF EACH 28-DAY CYCLE; CYCLE 1?DAILY DOSE: 300 MILLIGRAM(S)
     Dates: start: 20250627, end: 20250627
  3. FENTANYL [Concomitant]
     Active Substance: FENTANYL
     Indication: Cancer pain
     Dates: start: 20250404
  4. CALONAL [Concomitant]
     Active Substance: ACETAMINOPHEN
     Indication: Cancer pain
     Dates: start: 20250530
  5. FAMOTIDINE [Concomitant]
     Active Substance: FAMOTIDINE
     Indication: Gastritis
     Dates: start: 20250612
  6. OXINORM [ORGOTEIN] [Concomitant]
     Indication: Cancer pain
     Dates: start: 20241106

REACTIONS (6)
  - Malaise [Not Recovered/Not Resolved]
  - Urinary incontinence [Unknown]
  - Vomiting [Fatal]
  - Asphyxia [Fatal]
  - Off label use [Unknown]
  - Malignant neoplasm progression [Fatal]

NARRATIVE: CASE EVENT DATE: 20250627
